FAERS Safety Report 23918959 (Version 1)
Quarter: 2024Q2

REPORT INFORMATION
  Report Type: Spontaneous
  Country: US (occurrence: US)
  Receive Date: 20240530
  Receipt Date: 20240530
  Transmission Date: 20240716
  Serious: No
  Sender: FDA-Public Use
  Company Number: US-HALEON-2178967

PATIENT

DRUGS (2)
  1. PARODONTAX ACTIVE GUM REPAIR BREATH FRESHENER [Suspect]
     Active Substance: STANNOUS FLUORIDE
     Indication: Gingival bleeding
  2. PARODONTAX ACTIVE GUM REPAIR BREATH FRESHENER [Suspect]
     Active Substance: STANNOUS FLUORIDE
     Indication: Breath odour

REACTIONS (1)
  - Paraesthesia [Unknown]
